FAERS Safety Report 4721768-0 (Version None)
Quarter: 2005Q3

REPORT INFORMATION
  Report Type: 
  Country: None (occurrence: None)
  Receive Date: 20050721
  Receipt Date: 20050407
  Transmission Date: 20060218
  Serious: Yes (Other)
  Sender: FDA-Public Use
  Company Number: US-BRISTOL-MYERS SQUIBB COMPANY-12925921

PATIENT

DRUGS (2)
  1. COUMADIN [Suspect]
  2. LEXAPRO [Suspect]
     Route: 048
     Dates: start: 20050101

REACTIONS (1)
  - INTERNATIONAL NORMALISED RATIO INCREASED [None]
